FAERS Safety Report 6822191-5 (Version None)
Quarter: 2010Q3

REPORT INFORMATION
  Report Type: 
  Country: None (occurrence: None)
  Receive Date: 20100707
  Receipt Date: 20100707
  Transmission Date: 20110219
  Serious: Yes (Hospitalization, Other)
  Sender: FDA-Public Use
  Company Number: None

PATIENT
  Age: 65 Year
  Sex: Female
  Weight: 65.7716 kg

DRUGS (3)
  1. BENICAR HCT [Suspect]
     Indication: HYPERTENSION
     Dosage: 40 MGS / 12.5 DAILY PO
     Route: 048
     Dates: start: 20030101, end: 20071107
  2. PREMARIN [Concomitant]
  3. CALCIUM [Concomitant]

REACTIONS (5)
  - DIARRHOEA [None]
  - HYPOTENSION [None]
  - TROPICAL SPRUE [None]
  - VOMITING [None]
  - WEIGHT DECREASED [None]
